FAERS Safety Report 14612947 (Version 8)
Quarter: 2018Q2

REPORT INFORMATION
  Report Type: Spontaneous
  Country: RO (occurrence: RO)
  Receive Date: 20180308
  Receipt Date: 20180612
  Transmission Date: 20180711
  Serious: Yes (Hospitalization, Other)
  Sender: FDA-Public Use
  Company Number: RO-OTSUKA-2018_004476

PATIENT
  Age: 49 Year
  Sex: Female

DRUGS (9)
  1. DEXAMETHASONE. [Suspect]
     Active Substance: DEXAMETHASONE
     Indication: PRODUCT USED FOR UNKNOWN INDICATION
     Dosage: UNK
     Route: 065
     Dates: start: 2015
  2. METHYLPREDNISOLONE. [Suspect]
     Active Substance: METHYLPREDNISOLONE
     Dosage: 32 MG, QD (PER DAY DECREASING GRADUALLY)
     Route: 048
  3. PREDNISONE. [Suspect]
     Active Substance: PREDNISONE
     Indication: UVEITIS
     Dosage: UNK (LOW DOSE)
     Route: 065
     Dates: start: 201605
  4. METHYLPREDNISOLONE. [Suspect]
     Active Substance: METHYLPREDNISOLONE
     Dosage: 1 G, BID (DIVIDED IN TWO DOSES)
     Route: 042
  5. METHOTREXATE. [Suspect]
     Active Substance: METHOTREXATE
     Indication: CHOROIDITIS
     Dosage: 12.5 MG, QW
     Route: 065
     Dates: start: 201605
  6. PREDNISONE. [Suspect]
     Active Substance: PREDNISONE
     Indication: CHOROIDITIS
  7. VANCOMYCIN [Concomitant]
     Active Substance: VANCOMYCIN
     Indication: PRODUCT USED FOR UNKNOWN INDICATION
     Dosage: UNK
     Route: 065
  8. METHYLPREDNISOLONE. [Suspect]
     Active Substance: METHYLPREDNISOLONE
     Indication: VISUAL ACUITY REDUCED
     Dosage: UNK
     Route: 042
     Dates: start: 2015, end: 2016
  9. ARIPIPRAZOLE. [Suspect]
     Active Substance: ARIPIPRAZOLE
     Indication: SCHIZOPHRENIA
     Dosage: UNK
     Route: 065

REACTIONS (7)
  - Uveitis [Not Recovered/Not Resolved]
  - Drug ineffective [Unknown]
  - Choroiditis [Not Recovered/Not Resolved]
  - Chorioretinopathy [Recovering/Resolving]
  - Cushing^s syndrome [Unknown]
  - Birdshot chorioretinopathy [Recovering/Resolving]
  - Retinal exudates [Unknown]
